FAERS Safety Report 9621143 (Version 3)
Quarter: 2013Q4

REPORT INFORMATION
  Report Type: Spontaneous
  Country: DK (occurrence: FR)
  Receive Date: 20131015
  Receipt Date: 20131104
  Transmission Date: 20140711
  Serious: Yes (Death)
  Sender: FDA-Public Use
  Company Number: FR-FRI-1000050027

PATIENT
  Age: 86 Year
  Sex: Male
  Weight: 105 kg

DRUGS (20)
  1. ESCITALOPRAM [Suspect]
     Dosage: 1 DF
     Route: 048
  2. PREVISCAN [Suspect]
     Indication: ARRHYTHMIA
     Dosage: 0.75 DF
     Dates: start: 2009, end: 20130821
  3. PREVISCAN [Suspect]
     Dosage: DAILY DOSE REDUCED NOS
     Dates: start: 20130821, end: 20130822
  4. CORDARONE [Suspect]
     Dosage: 1 DF
     Route: 048
  5. DOLIPRANE [Suspect]
     Dosage: 1 DF
     Route: 048
     Dates: end: 201308
  6. LASILIX [Concomitant]
     Dosage: 1 DF
     Route: 048
  7. LASILIX [Concomitant]
     Dosage: 4 DF
     Route: 048
  8. LASILIX [Concomitant]
     Dosage: 1 DF
     Route: 048
  9. EBIXA [Concomitant]
     Dosage: 1.5 DF
     Route: 048
  10. MECIR [Concomitant]
     Dosage: 1 DF
     Route: 048
  11. DEBRIDAT [Concomitant]
     Dosage: 3 DF
     Dates: start: 20130821
  12. LYSANXIA [Concomitant]
     Dosage: 1 DF
     Route: 048
  13. KALEORID [Concomitant]
     Dosage: 3 DF
     Route: 048
  14. PERMIXON [Concomitant]
     Dosage: 2 DF
     Route: 048
  15. XANAX [Concomitant]
     Route: 048
  16. VALSARTAN [Concomitant]
     Dosage: 1 DF
     Route: 048
  17. POLY-KARAYA [Concomitant]
     Dates: end: 201308
  18. MOVICOL [Concomitant]
     Dates: end: 201308
  19. TIAPRIDAL [Concomitant]
     Dosage: 2 DF
     Route: 048
     Dates: end: 20130821
  20. AUGMENTIN [Concomitant]
     Indication: ERYSIPELAS
     Dosage: 3 GRAMS
     Dates: start: 20130821

REACTIONS (2)
  - International normalised ratio increased [Fatal]
  - Drug interaction [Fatal]
